FAERS Safety Report 7032523-3 (Version None)
Quarter: 2010Q4

REPORT INFORMATION
  Report Type: 
  Country: None (occurrence: None)
  Receive Date: 20101007
  Receipt Date: 20100929
  Transmission Date: 20110411
  Serious: Yes (Death, Other)
  Sender: FDA-Public Use
  Company Number: ES-CELGENEUS-144-50794-10092872

PATIENT
  Age: 80 Year
  Sex: Male

DRUGS (5)
  1. VIDAZA [Suspect]
     Route: 051
     Dates: start: 20081111, end: 20090220
  2. VIDAZA [Suspect]
     Indication: ACUTE MYELOID LEUKAEMIA
     Route: 051
     Dates: start: 20090810, end: 20100618
  3. RED BLOOD CELLS [Concomitant]
     Indication: PRODUCT USED FOR UNKNOWN INDICATION
     Route: 065
  4. PLATELETS [Concomitant]
     Indication: PRODUCT USED FOR UNKNOWN INDICATION
     Route: 065
  5. ONDANSETRON [Concomitant]
     Indication: PROPHYLAXIS
     Route: 065

REACTIONS (4)
  - ACUTE MYELOID LEUKAEMIA [None]
  - LEUKAEMIA [None]
  - MYELODYSPLASTIC SYNDROME TRANSFORMATION [None]
  - THROMBOCYTOPENIA [None]
